FAERS Safety Report 4910236-9 (Version None)
Quarter: 2006Q1

REPORT INFORMATION
  Report Type: 
  Country: None (occurrence: None)
  Receive Date: 20060213
  Receipt Date: 20050223
  Transmission Date: 20060701
  Serious: Yes (Life-Threatening, Hospitalization, Disabling)
  Sender: FDA-Public Use
  Company Number: US-MERCK-0502USA03494

PATIENT
  Age: 51 Year
  Sex: Male
  Weight: 114 kg

DRUGS (2)
  1. VIOXX [Suspect]
     Indication: SHOULDER PAIN
     Route: 048
  2. VIOXX [Suspect]
     Route: 048

REACTIONS (5)
  - CARDIAC DISORDER [None]
  - LIMB INJURY [None]
  - MYOCARDIAL INFARCTION [None]
  - OVERDOSE [None]
  - ROAD TRAFFIC ACCIDENT [None]
